FAERS Safety Report 7064829-6 (Version None)
Quarter: 2010Q4

REPORT INFORMATION
  Report Type: 
  Country: None (occurrence: None)
  Receive Date: 20101027
  Receipt Date: 19880121
  Transmission Date: 20110411
  Serious: Yes (Death, Life-Threatening, Hospitalization)
  Sender: FDA-Public Use
  Company Number: US-ROCHE-880200060001

PATIENT
  Age: 60 Year
  Sex: Female
  Weight: 55 kg

DRUGS (11)
  1. DIAZEPAM [Suspect]
     Route: 065
  2. BUMEX [Suspect]
     Route: 042
     Dates: start: 19871215, end: 19880111
  3. LASIX [Concomitant]
     Route: 065
  4. CYTOXAN [Concomitant]
     Route: 065
  5. MEXILETINE [Concomitant]
     Route: 065
  6. ALPRAZOLAM [Concomitant]
     Route: 065
  7. ACETAMINOPHEN [Concomitant]
     Route: 065
  8. BENADRYL [Concomitant]
     Route: 065
  9. CORTISONE [Concomitant]
     Route: 065
  10. ALDACTONE [Concomitant]
     Route: 065
  11. COMPAZINE [Concomitant]
     Route: 065

REACTIONS (5)
  - CARDIO-RESPIRATORY DISTRESS [None]
  - GASTROINTESTINAL HAEMORRHAGE [None]
  - PANCYTOPENIA [None]
  - PULMONARY FIBROSIS [None]
  - THROMBOCYTOPENIC PURPURA [None]
